FAERS Safety Report 5518747-2 (Version None)
Quarter: 2007Q4

REPORT INFORMATION
  Report Type: 
  Country: None (occurrence: None)
  Receive Date: 20071115
  Receipt Date: 20071112
  Transmission Date: 20080405
  Serious: Yes (Other)
  Sender: FDA-Public Use
  Company Number: US-BAYER-200712630BCC

PATIENT
  Age: 19 Year
  Sex: Female
  Weight: 59 kg

DRUGS (4)
  1. MIDOL [Suspect]
     Indication: MUSCLE SPASMS
     Dosage: TOTAL DAILY DOSE: 2000 MG  UNIT DOSE: 500 MG
     Route: 048
     Dates: start: 20070807
  2. MIDOL [Suspect]
     Dosage: TOTAL DAILY DOSE: 1000 MG  UNIT DOSE: 500 MG
     Route: 048
     Dates: start: 20070808
  3. CYCLOSPORINE [Concomitant]
  4. CELLCEPT [Concomitant]

REACTIONS (9)
  - ASTHENIA [None]
  - CHEST PAIN [None]
  - DIZZINESS [None]
  - DYSPNOEA [None]
  - FATIGUE [None]
  - INFLAMMATION [None]
  - PALPITATIONS [None]
  - URINARY TRACT INFECTION [None]
  - VITAL FUNCTIONS ABNORMAL [None]
